APPROVED DRUG PRODUCT: MONISTAT 3 COMBINATION PACK
Active Ingredient: MICONAZOLE NITRATE
Strength: 2%,4%
Dosage Form/Route: CREAM;TOPICAL, VAGINAL
Application: N021261 | Product #003
Applicant: MEDTECH PRODUCTS INC
Approved: Jun 17, 2003 | RLD: Yes | RS: No | Type: OTC